FAERS Safety Report 8447341-9 (Version None)
Quarter: 2012Q2

REPORT INFORMATION
  Report Type: 
  Country: None (occurrence: None)
  Receive Date: 20120612
  Receipt Date: 20120604
  Transmission Date: 20120825
  Serious: Yes (Other)
  Sender: FDA-Public Use
  Company Number: WAES 1205USA00026

PATIENT
  Age: 16 Year
  Sex: Female

DRUGS (15)
  1. EMEND [Suspect]
     Indication: PROPHYLAXIS
     Dosage: 125 MG/1X 80 MG/1X
     Route: 048
     Dates: start: 20120417, end: 20120417
  2. EMEND [Suspect]
     Indication: PROPHYLAXIS
     Dosage: 125 MG/1X 80 MG/1X
     Route: 048
     Dates: start: 20120418, end: 20120418
  3. EMEND [Suspect]
     Indication: PROPHYLAXIS
     Dosage: 125 MG/1X 80 MG/1X
     Route: 048
     Dates: start: 20120419, end: 20120419
  4. AMETOP [Concomitant]
  5. DIHYDROCODEINE BITARTRATE INJ [Concomitant]
  6. ACETAMINOPHEN [Concomitant]
  7. LEVOMEPROMAZINE [Concomitant]
  8. DEXAMETHASONE [Suspect]
     Indication: PROPHYLAXIS OF NAUSEA AND VOMITING
     Dosage: 12 ML 5 ML/TID
     Route: 042
     Dates: start: 20120418, end: 20120420
  9. DEXAMETHASONE [Suspect]
     Indication: PROPHYLAXIS OF NAUSEA AND VOMITING
     Dosage: 12 ML 5 ML/TID
     Route: 042
     Dates: start: 20120417, end: 20120417
  10. ONDANSETRON [Suspect]
     Indication: PROPHYLAXIS OF NAUSEA AND VOMITING
     Dosage: 8 MG/BID
     Route: 048
     Dates: start: 20120418, end: 20120420
  11. ONDANSETRON [Suspect]
     Indication: PROPHYLAXIS OF NAUSEA AND VOMITING
     Dosage: 8 MG/BID
     Route: 048
     Dates: start: 20120417, end: 20120420
  12. DOXORUBICIN HCL [Suspect]
     Indication: BONE SARCOMA
     Dosage: 59 MG/DAILY
     Route: 042
     Dates: start: 20120417, end: 20120419
  13. CISPLATIN [Suspect]
     Indication: BONE SARCOMA
     Dosage: 63 MG/DAILY
     Route: 042
     Dates: start: 20120417, end: 20120420
  14. ONDANSETRON HYDROCHLORIDE [Concomitant]
  15. METOCLOPRAMIDE [Concomitant]

REACTIONS (3)
  - ELECTROCARDIOGRAM T WAVE INVERSION [None]
  - SINUS ARRHYTHMIA [None]
  - BLOOD CREATINE PHOSPHOKINASE INCREASED [None]
